FAERS Safety Report 9042141 (Version 1)
Quarter: 2013Q1

REPORT INFORMATION
  Report Type: Report from Study
  Country: US (occurrence: US)
  Receive Date: 20130129
  Receipt Date: 20130129
  Transmission Date: 20140127
  Serious: No
  Sender: FDA-Public Use
  Company Number: US-ABBOTT-12P-163-0906908-00

PATIENT
  Sex: Female
  Weight: 62.65 kg

DRUGS (7)
  1. HUMIRA 40 MG/0.8 ML PEN [Suspect]
     Indication: PSORIATIC ARTHROPATHY
     Route: 058
     Dates: start: 201201
  2. METHOTREXATE [Concomitant]
     Indication: PSORIATIC ARTHROPATHY
  3. VITAMIN D [Concomitant]
     Indication: VITAMIN SUPPLEMENTATION
  4. RECLAST [Concomitant]
     Indication: OSTEOARTHRITIS
     Dates: start: 2009
  5. CRESTOR [Concomitant]
     Indication: BLOOD CHOLESTEROL INCREASED
  6. FOLIC ACID [Concomitant]
     Indication: PSORIATIC ARTHROPATHY
  7. SYNTHROID [Concomitant]
     Indication: HYPOTHYROIDISM

REACTIONS (1)
  - Headache [Not Recovered/Not Resolved]
